FAERS Safety Report 12121421 (Version 1)
Quarter: 2016Q1

REPORT INFORMATION
  Report Type: Spontaneous
  Country: US (occurrence: US)
  Receive Date: 20160226
  Receipt Date: 20160226
  Transmission Date: 20160526
  Serious: No
  Sender: FDA-Public Use
  Company Number: US-ALLERGAN-1413957US

PATIENT
  Age: 27 Year
  Sex: Female

DRUGS (2)
  1. REFRESH OPTIVE [Suspect]
     Active Substance: CARBOXYMETHYLCELLULOSE SODIUM\GLYCERIN
     Indication: KERATOMILEUSIS
     Dosage: 2 GTT, EVERY 30 MINUTES
     Route: 047
     Dates: start: 20140614, end: 20140618
  2. REFRESH OPTIVE SENSITIVE [Concomitant]
     Active Substance: CARBOXYMETHYLCELLULOSE SODIUM\GLYCERIN
     Indication: KERATOMILEUSIS
     Dosage: 2 GTT, UNK
     Route: 047
     Dates: start: 20140613, end: 20140613

REACTIONS (1)
  - Eye infection [Recovering/Resolving]
